FAERS Safety Report 16067119 (Version 1)
Quarter: 2019Q1

REPORT INFORMATION
  Report Type: Spontaneous
  Country: GB (occurrence: GB)
  Receive Date: 20190313
  Receipt Date: 20190313
  Transmission Date: 20190418
  Serious: Yes (Disabling, Other)
  Sender: FDA-Public Use
  Company Number: GB-MYLANLABS-2019M1022994

PATIENT
  Age: 70 Year
  Sex: Female

DRUGS (3)
  1. ACCRETE D3 [Concomitant]
     Active Substance: CALCIUM CARBONATE\CHOLECALCIFEROL
  2. BISOPROLOL [Concomitant]
     Active Substance: BISOPROLOL
  3. ALENDRONATE [Suspect]
     Active Substance: ALENDRONATE SODIUM
     Indication: OSTEOPOROSIS PROPHYLAXIS
     Dosage: 70 MILLIGRAM, QW
     Route: 048
     Dates: start: 2006, end: 2016

REACTIONS (2)
  - Body height decreased [Unknown]
  - Intervertebral disc degeneration [Not Recovered/Not Resolved]
